FAERS Safety Report 14991404 (Version 4)
Quarter: 2018Q3

REPORT INFORMATION
  Report Type: Spontaneous
  Country: FI (occurrence: FI)
  Receive Date: 20180608
  Receipt Date: 20180822
  Transmission Date: 20181010
  Serious: No
  Sender: FDA-Public Use
  Company Number: FI-GLAXOSMITHKLINE-FI2018101912

PATIENT
  Age: 5 Decade

DRUGS (1)
  1. NICORETTE [Suspect]
     Active Substance: NICOTINE
     Indication: SMOKING CESSATION THERAPY
     Dosage: 2 MG, UNK
     Route: 048

REACTIONS (3)
  - Nicotine dependence [Unknown]
  - Therapeutic response decreased [Unknown]
  - Intentional product use issue [Unknown]
